FAERS Safety Report 23590239 (Version 1)
Quarter: 2024Q1

REPORT INFORMATION
  Report Type: Spontaneous
  Country: JP (occurrence: JP)
  Receive Date: 20240304
  Receipt Date: 20240304
  Transmission Date: 20240410
  Serious: Yes (Other)
  Sender: FDA-Public Use
  Company Number: JP-DSJP-DSJ-2024-108998

PATIENT
  Age: 6 Decade
  Sex: Male
  Weight: 63.1 kg

DRUGS (6)
  1. EDOXABAN TOSYLATE [Suspect]
     Active Substance: EDOXABAN TOSYLATE
     Indication: Vena cava thrombosis
     Dosage: UNK
     Route: 048
  2. LENVATINIB MESYLATE [Suspect]
     Active Substance: LENVATINIB MESYLATE
     Indication: Hepatocellular carcinoma
     Dosage: 8MG/DAY
     Route: 048
  3. LENVATINIB MESYLATE [Suspect]
     Active Substance: LENVATINIB MESYLATE
     Dosage: UNK
     Route: 048
  4. LEUCOVORIN [Concomitant]
     Active Substance: LEUCOVORIN\LEUCOVORIN CALCIUM
     Indication: Hepatocellular carcinoma
     Dosage: 12MG/H, CONTINUOUS INJECTION FOR 24 HOURS, 5 CONSECUTIVE DAYS FOLLOWED BY 2 DAYS OFF
     Route: 050
  5. CISPLATIN [Concomitant]
     Active Substance: CISPLATIN
     Indication: Hepatocellular carcinoma
     Dosage: 10MG/H, CONTINUOUS INJECTION FOR 24 HOURS, 5 CONSECUTIVE DAYS FOLLOWED BY 2 DAYS OFF
     Route: 050
  6. FLUOROURACIL [Concomitant]
     Active Substance: FLUOROURACIL
     Indication: Hepatocellular carcinoma
     Dosage: 250MG/M2/22H, CONTINUOUS INJECTION FOR 24 HOURS, 5 CONSECUTIVE DAYS FOLLOWED BY 2 DAYS OFF
     Route: 050

REACTIONS (4)
  - Medical device site infection [Unknown]
  - Sepsis [Recovering/Resolving]
  - Hyperammonaemia [Recovered/Resolved]
  - Hepatic encephalopathy [Recovered/Resolved]
